FAERS Safety Report 7347507-5 (Version None)
Quarter: 2011Q1

REPORT INFORMATION
  Report Type: 
  Country: None (occurrence: None)
  Receive Date: 20110311
  Receipt Date: 20110224
  Transmission Date: 20110831
  Serious: Yes (Hospitalization)
  Sender: FDA-Public Use
  Company Number: US-BAYER-201041553NA

PATIENT
  Sex: Female
  Weight: 58.957 kg

DRUGS (3)
  1. YAZ [Suspect]
     Indication: ACNE
     Dosage: UNK
     Dates: end: 20090924
  2. OCELLA [Suspect]
     Indication: ACNE
  3. YASMIN [Suspect]
     Indication: ACNE

REACTIONS (2)
  - CHOLECYSTITIS [None]
  - GALLBLADDER CHOLESTEROLOSIS [None]
